FAERS Safety Report 9516234 (Version 1)
Quarter: 2013Q3

REPORT INFORMATION
  Report Type: Spontaneous
  Country: IN (occurrence: IN)
  Receive Date: 20130911
  Receipt Date: 20130911
  Transmission Date: 20140515
  Serious: Yes (Other)
  Sender: FDA-Public Use
  Company Number: PHHY2013IN096642

PATIENT
  Sex: Male

DRUGS (12)
  1. CHLORAMPHENICOL [Suspect]
     Route: 064
  2. NORFLOXACIN [Suspect]
     Route: 064
  3. MEROPENEM [Suspect]
     Route: 064
  4. VANCOMYCIN [Suspect]
     Route: 064
  5. AMIKACIN [Suspect]
     Route: 064
  6. ISONIAZID [Suspect]
     Route: 064
  7. RIFAMPICIN [Suspect]
     Route: 064
  8. ETHAMBUTOL [Suspect]
     Route: 064
  9. PYRAZINAMIDE [Suspect]
     Route: 064
  10. PIPERACILLIN+TAZOBACTAM [Suspect]
     Route: 064
  11. AMPICILLIN [Suspect]
     Route: 064
  12. PYRIDOXINE [Suspect]
     Route: 064

REACTIONS (3)
  - Premature baby [Unknown]
  - Foetal growth restriction [Unknown]
  - Foetal exposure during pregnancy [Unknown]
